FAERS Safety Report 8530178-X (Version None)
Quarter: 2012Q3

REPORT INFORMATION
  Report Type: 
  Country: None (occurrence: None)
  Receive Date: 20120723
  Receipt Date: 20120719
  Transmission Date: 20120928
  Serious: Yes (Other)
  Sender: FDA-Public Use
  Company Number: PHFR2012GB003896

PATIENT
  Sex: Female
  Weight: 90.6 kg

DRUGS (4)
  1. CLOZARIL [Suspect]
     Indication: SCHIZOPHRENIA, PARANOID TYPE
     Dosage: 450 UG, DAILY
     Route: 048
     Dates: start: 20100907
  2. PREGABALIN [Concomitant]
     Dosage: 400 UG, DAILY
     Route: 048
     Dates: start: 20100907
  3. KWELLS [Concomitant]
     Indication: SALIVARY HYPERSECRETION
     Dosage: 300 UG, DAILY
     Route: 048
  4. OMACOR [Concomitant]

REACTIONS (10)
  - MALAISE [None]
  - CHILLS [None]
  - NAUSEA [None]
  - DIARRHOEA [None]
  - BODY TEMPERATURE INCREASED [None]
  - C-REACTIVE PROTEIN INCREASED [None]
  - NEUTROPHIL COUNT INCREASED [None]
  - HAEMOGLOBIN INCREASED [None]
  - OROPHARYNGEAL PAIN [None]
  - WHITE BLOOD CELL COUNT INCREASED [None]
